FAERS Safety Report 21191049 (Version 1)
Quarter: 2022Q3

REPORT INFORMATION
  Report Type: Spontaneous
  Country: US (occurrence: None)
  Receive Date: 20220809
  Receipt Date: 20220809
  Transmission Date: 20221026
  Serious: No
  Sender: FDA-Public Use
  Company Number: None

PATIENT
  Age: 70 Year
  Sex: Female
  Weight: 99.9 kg

DRUGS (12)
  1. ATROVENT HFA [Suspect]
     Active Substance: IPRATROPIUM BROMIDE
     Indication: Asthma
     Dosage: OTHER QUANTITY : 1 PUFF(S);?FREQUENCY : TWICE A DAY;?
     Route: 055
  2. TIKOSYN [Concomitant]
     Active Substance: DOFETILIDE
  3. ELIQUIS [Concomitant]
     Active Substance: APIXABAN
  4. PEPCID [Concomitant]
     Active Substance: FAMOTIDINE
  5. VENTOLIN HFA [Concomitant]
     Active Substance: ALBUTEROL SULFATE
  6. DILTIAZEM [Concomitant]
     Active Substance: DILTIAZEM
  7. FISH OIL [Concomitant]
     Active Substance: FISH OIL
  8. CALCIUM\VITAMIN D [Concomitant]
     Active Substance: CALCIUM\VITAMIN D
  9. PROBIOTICS NOS [Concomitant]
     Active Substance: PROBIOTICS NOS
  10. LUTEIN [Concomitant]
     Active Substance: LUTEIN
  11. billberry [Concomitant]
  12. DIETARY SUPPLEMENT [Concomitant]
     Active Substance: DIETARY SUPPLEMENT

REACTIONS (4)
  - Paraesthesia [None]
  - Rash [None]
  - Tachycardia [None]
  - Palpitations [None]
